FAERS Safety Report 24624940 (Version 2)
Quarter: 2024Q4

REPORT INFORMATION
  Report Type: Spontaneous
  Country: IT (occurrence: IT)
  Receive Date: 20241115
  Receipt Date: 20241218
  Transmission Date: 20250114
  Serious: Yes (Hospitalization)
  Sender: NOVARTIS
  Company Number: IT-002147023-NVSC2024IT218718

PATIENT
  Age: 69 Year
  Sex: Female

DRUGS (16)
  1. LUTATHERA [Suspect]
     Active Substance: LUTETIUM OXODOTREOTIDE LU-177
     Indication: Gastroenteropancreatic neuroendocrine tumour disease
     Dosage: 7.4 GBQ (IN 4 CYCLES SPACED EVERY 8 TO 16 WEEKS (1 ADMINISTRATION IN THIS CASE)
     Route: 042
     Dates: start: 20240926
  2. ALPRAZOLAM [Concomitant]
     Active Substance: ALPRAZOLAM
     Indication: Product used for unknown indication
     Dosage: 0.5 MG (SOLID) 1/2TABLET X 2 DAILY
     Route: 048
  3. BISOPROLOL FUMARATE [Concomitant]
     Active Substance: BISOPROLOL FUMARATE
     Indication: Product used for unknown indication
     Dosage: 2.5 MG, QD (SOLID 09:00;20:00 ? TABLET IN THE EVENING)
     Route: 048
  4. CANRENONE [Concomitant]
     Active Substance: CANRENONE
     Indication: Product used for unknown indication
     Dosage: 50 MG, QD (SOLID)
     Route: 048
  5. FUROSEMIDE [Concomitant]
     Active Substance: FUROSEMIDE
     Indication: Product used for unknown indication
     Dosage: 25 MG, QD (SOLID)
     Route: 048
  6. LEVOTHYROXINE [Concomitant]
     Active Substance: LEVOTHYROXINE
     Indication: Product used for unknown indication
     Dosage: 50 UG, QD (SOLID 08:00 MONDAY/TUESDAY/WEDNESDAY/THURSDAY/FRIDAY)
     Route: 048
  7. LORMETAZEPAM [Concomitant]
     Active Substance: LORMETAZEPAM
     Indication: Product used for unknown indication
     Dosage: 1 MG, QD (SOLID 22:00)
     Route: 048
  8. MIRTAZAPINE [Concomitant]
     Active Substance: MIRTAZAPINE
     Indication: Product used for unknown indication
     Dosage: 30 MG, QD (SOLID 22:00 ? TABLET IN THE EVENING)
     Route: 048
  9. PAROXETINE [Concomitant]
     Active Substance: PAROXETINE
     Indication: Product used for unknown indication
     Dosage: 20 MG, QD (SOLID 09:00)
     Route: 048
  10. RAMIPRIL [Concomitant]
     Active Substance: RAMIPRIL
     Indication: Product used for unknown indication
     Dosage: 5 MG, QD (SOLID 09:00; 20:00 ? CAPSULE IN THE EVENIN)
     Route: 048
  11. TIMOLOL MALEATO [Concomitant]
     Indication: Product used for unknown indication
     Dosage: 1 DRP (O 0.4 MG 0.1% (0.4 G) 1 DROPS OPHTHALMIC SOLID 08:00 1/DAY EYE LEFT/RIGHT)
     Route: 047
  12. ARGININE [Concomitant]
     Active Substance: ARGININE
     Indication: Premedication
     Dosage: 30 G
     Route: 042
     Dates: start: 20240926
  13. DEXAMETHASONE [Concomitant]
     Active Substance: DEXAMETHASONE
     Indication: Premedication
     Dosage: 8 MG
     Route: 042
     Dates: start: 20240926
  14. CLORFENIRAMINA [Concomitant]
     Indication: Premedication
     Dosage: 10 MG
     Route: 042
     Dates: start: 20240926
  15. PANTOPRAZOLE SODIUM [Concomitant]
     Active Substance: PANTOPRAZOLE SODIUM
     Indication: Premedication
     Dosage: 40 MG
     Route: 042
     Dates: start: 20240926
  16. LANREOTIDE [Concomitant]
     Active Substance: LANREOTIDE
     Indication: Product used for unknown indication
     Dosage: UNK
     Route: 065
     Dates: start: 202009, end: 202309

REACTIONS (2)
  - Gastroenteropancreatic neuroendocrine tumour disease [Recovered/Resolved with Sequelae]
  - Malignant neoplasm progression [Recovered/Resolved with Sequelae]

NARRATIVE: CASE EVENT DATE: 20241110
